FAERS Safety Report 7407958-7 (Version None)
Quarter: 2011Q2

REPORT INFORMATION
  Report Type: 
  Country: None (occurrence: None)
  Receive Date: 20110412
  Receipt Date: 20110406
  Transmission Date: 20111010
  Serious: No
  Sender: FDA-Public Use
  Company Number: US-PFIZER INC-2011076647

PATIENT
  Sex: Female
  Weight: 86.168 kg

DRUGS (1)
  1. ADVIL PM [Suspect]
     Indication: INSOMNIA
     Dosage: 200 MG, DAILY
     Route: 048
     Dates: start: 20110404, end: 20110405

REACTIONS (1)
  - DRUG INEFFECTIVE [None]
